FAERS Safety Report 21310422 (Version 2)
Quarter: 2022Q3

REPORT INFORMATION
  Report Type: Report from Study
  Country: IT (occurrence: IT)
  Receive Date: 20220909
  Receipt Date: 20220927
  Transmission Date: 20221026
  Serious: Yes (Death, Hospitalization, Other)
  Sender: FDA-Public Use
  Company Number: IT-NOVARTISPH-NVSC2022IT201351

PATIENT
  Age: 78 Year
  Sex: Male
  Weight: 75 kg

DRUGS (2)
  1. CAPMATINIB [Suspect]
     Active Substance: CAPMATINIB
     Indication: Lung adenocarcinoma
     Dosage: 800 MG, QD
     Route: 048
     Dates: start: 20220128, end: 20220630
  2. CAPMATINIB [Suspect]
     Active Substance: CAPMATINIB
     Dosage: 400 MG, QD
     Route: 048
     Dates: start: 20220128, end: 20220823

REACTIONS (4)
  - Sepsis [Fatal]
  - Lung adenocarcinoma [Not Recovered/Not Resolved]
  - Malignant neoplasm progression [Not Recovered/Not Resolved]
  - Oedema [Recovered/Resolved with Sequelae]

NARRATIVE: CASE EVENT DATE: 20220630
